FAERS Safety Report 25656994 (Version 1)
Quarter: 2025Q3

REPORT INFORMATION
  Report Type: Spontaneous
  Country: US (occurrence: US)
  Receive Date: 20250807
  Receipt Date: 20250807
  Transmission Date: 20251021
  Serious: No
  Sender: BEIGENE
  Company Number: US-BEIGENE-BGN-2025-012640

PATIENT
  Age: 78 Year

DRUGS (2)
  1. BRUKINSA [Suspect]
     Active Substance: ZANUBRUTINIB
     Indication: Waldenstrom^s macroglobulinaemia
  2. CORTISONE [Concomitant]
     Active Substance: CORTISONE

REACTIONS (4)
  - Arthritis [Unknown]
  - Erythema [Recovering/Resolving]
  - Haemorrhage subcutaneous [Recovering/Resolving]
  - Injection site erythema [Unknown]
